FAERS Safety Report 6996336-0 (Version None)
Quarter: 2010Q3

REPORT INFORMATION
  Report Type: 
  Country: None (occurrence: None)
  Receive Date: 20100918
  Receipt Date: 20090206
  Transmission Date: 20110219
  Serious: No
  Sender: FDA-Public Use
  Company Number: US-WYE-H08146509

PATIENT
  Age: 27 Year
  Sex: Female
  Weight: 68.1 kg

DRUGS (3)
  1. ALAVERT [Suspect]
     Indication: HYPERSENSITIVITY
     Route: 048
     Dates: start: 20090128, end: 20090205
  2. PREVACID [Concomitant]
  3. NASONEX [Concomitant]

REACTIONS (2)
  - GINGIVAL BLISTER [None]
  - ORAL MUCOSAL EXFOLIATION [None]
